FAERS Safety Report 17571119 (Version 1)
Quarter: 2020Q1

REPORT INFORMATION
  Report Type: Spontaneous
  Country: US (occurrence: US)
  Receive Date: 20200317
  Receipt Date: 20200317
  Transmission Date: 20200409
  Serious: Yes (Hospitalization, Other)
  Sender: FDA-Public Use
  Company Number: None

PATIENT
  Age: 80 Year
  Sex: Female

DRUGS (25)
  1. CALCITRIOL. [Concomitant]
     Active Substance: CALCITRIOL
  2. FEROSUL [Concomitant]
     Active Substance: FERROUS SULFATE
  3. LEVETIRACETA [Concomitant]
  4. PANTOPRAZOLE [Concomitant]
     Active Substance: PANTOPRAZOLE
  5. VITAMIN D [Concomitant]
     Active Substance: VITAMIN D NOS
  6. LIISNOPRIL [Concomitant]
  7. ONETOUCH DEL MIS PLUS [Concomitant]
  8. SUCRALFATE. [Concomitant]
     Active Substance: SUCRALFATE
  9. ATORVASTATIN [Concomitant]
     Active Substance: ATORVASTATIN
  10. BASAGLAR [Concomitant]
     Active Substance: INSULIN GLARGINE
  11. CEPHALEXIN. [Concomitant]
     Active Substance: CEPHALEXIN
  12. SODIUM BICAR [Concomitant]
  13. ISOSORB MONO [Concomitant]
     Active Substance: ISOSORBIDE MONONITRATE
  14. METOLAZONE. [Concomitant]
     Active Substance: METOLAZONE
  15. PROCRIT [Suspect]
     Active Substance: ERYTHROPOIETIN
     Indication: ANAEMIA
     Dosage: ?          OTHER FREQUENCY:QM;?
     Route: 058
     Dates: start: 20200116
  16. PROCRIT [Suspect]
     Active Substance: ERYTHROPOIETIN
     Indication: CHRONIC KIDNEY DISEASE
     Dosage: ?          OTHER FREQUENCY:QM;?
     Route: 058
     Dates: start: 20200116
  17. ADEMLOG SOLO [Concomitant]
  18. CIPROFLOXACIN. [Concomitant]
     Active Substance: CIPROFLOXACIN
  19. NIFEDIPINE. [Concomitant]
     Active Substance: NIFEDIPINE
  20. PEN NEEDLES MIS [Concomitant]
  21. FUROSEMIDE. [Concomitant]
     Active Substance: FUROSEMIDE
  22. GABAPENTIN. [Concomitant]
     Active Substance: GABAPENTIN
  23. ONETOUCH TES ULTRA [Concomitant]
  24. CREON [Concomitant]
     Active Substance: PANCRELIPASE AMYLASE\PANCRELIPASE LIPASE\PANCRELIPASE PROTEASE
  25. PHENYTOIN. [Concomitant]
     Active Substance: PHENYTOIN

REACTIONS (3)
  - Fistula [None]
  - Dialysis [None]
  - Infection [None]

NARRATIVE: CASE EVENT DATE: 202003
